FAERS Safety Report 9220568 (Version 1)
Quarter: 2013Q1

REPORT INFORMATION
  Report Type: Spontaneous
  Country: US (occurrence: None)
  Receive Date: 20120831
  Receipt Date: 20120831
  Transmission Date: 20140127
  Serious: No
  Sender: FDA-Public Use
  Company Number: 1000031061

PATIENT
  Age: 72 Year
  Sex: Male

DRUGS (2)
  1. DALIRESP [Suspect]
     Indication: CHRONIC OBSTRUCTIVE PULMONARY DISEASE
     Dosage: 500 MCG ( 500 MCG, 1 IN 1 D) ORAL
     Route: 048
     Dates: start: 201201
  2. QUINAPRIL [Concomitant]

REACTIONS (2)
  - Diarrhoea [None]
  - Weight decreased [None]
